FAERS Safety Report 4817537-3 (Version None)
Quarter: 2005Q4

REPORT INFORMATION
  Report Type: 
  Country: None (occurrence: None)
  Receive Date: 20051031
  Receipt Date: 20051018
  Transmission Date: 20060501
  Serious: Yes (Hospitalization)
  Sender: FDA-Public Use
  Company Number: 2005144078

PATIENT
  Age: 75 Year
  Sex: Male

DRUGS (1)
  1. CLINDAMYCIN HCL [Suspect]
     Indication: OSTEOMYELITIS
     Dosage: ORAL
     Route: 048

REACTIONS (8)
  - ASPIRATION [None]
  - CAUSTIC INJURY [None]
  - DYSPHAGIA [None]
  - FOREIGN BODY TRAUMA [None]
  - MOUTH INJURY [None]
  - PHARYNGEAL INJURY [None]
  - PHARYNGOLARYNGEAL PAIN [None]
  - VIRAL INFECTION [None]
